FAERS Safety Report 11811924 (Version 1)
Quarter: 2015Q4

REPORT INFORMATION
  Report Type: Report from Study
  Country: CA (occurrence: CA)
  Receive Date: 20151208
  Receipt Date: 20151208
  Transmission Date: 20160305
  Serious: Yes (Other)
  Sender: FDA-Public Use
  Company Number: CA-JNJFOC-20151205607

PATIENT
  Sex: Male
  Weight: 59.7 kg

DRUGS (5)
  1. D TABS [Concomitant]
     Route: 065
  2. EURO FOLIC [Concomitant]
     Route: 065
  3. METHOTREXATE [Concomitant]
     Active Substance: METHOTREXATE
     Route: 065
  4. LAX-A-DAY [Concomitant]
     Route: 065
  5. REMICADE [Suspect]
     Active Substance: INFLIXIMAB
     Indication: RHEUMATOID ARTHRITIS
     Route: 042
     Dates: start: 20091022

REACTIONS (1)
  - Abdominal adhesions [Unknown]
